FAERS Safety Report 16666717 (Version 3)
Quarter: 2021Q3

REPORT INFORMATION
  Report Type: Spontaneous
  Country: US (occurrence: US)
  Receive Date: 20190805
  Receipt Date: 20210806
  Transmission Date: 20211014
  Serious: Yes (Other)
  Sender: FDA-Public Use
  Company Number: US-ACCORD-097308

PATIENT
  Age: 62 Year
  Sex: Female

DRUGS (16)
  1. MIRALAX [Concomitant]
     Active Substance: POLYETHYLENE GLYCOL 3350
  2. PARAPLATIN [Suspect]
     Active Substance: CARBOPLATIN
     Indication: BREAST CANCER
     Dates: start: 20110623, end: 20111007
  3. DECADRON [Concomitant]
     Active Substance: DEXAMETHASONE
  4. PRILOSEC [Concomitant]
     Active Substance: OMEPRAZOLE MAGNESIUM
  5. DOCETAXEL ACCORD [Suspect]
     Active Substance: DOCETAXEL
     Indication: BREAST CANCER
     Dosage: NUMBER OF CYCLES: 06
     Dates: start: 20110623, end: 20111007
  6. CARAFATE [Concomitant]
     Active Substance: SUCRALFATE
  7. PREMARIN [Concomitant]
     Active Substance: ESTROGENS, CONJUGATED
     Dates: start: 20100501, end: 20111231
  8. PROMETRIUM [Concomitant]
     Active Substance: PROGESTERONE
     Dates: start: 20050101, end: 20111231
  9. HERCEPTIN [Suspect]
     Active Substance: TRASTUZUMAB
     Indication: BREAST CANCER
     Dosage: IN COMBINATION TILL 07?OCT?2011 AND FROM 04?NOV?2011 TO 22?JUN?2012, HERCEPTIN ALONE
     Dates: start: 20110623, end: 20120622
  10. COMPAZINE [Concomitant]
     Active Substance: PROCHLORPERAZINE MALEATE
  11. VICODIN [Concomitant]
     Active Substance: ACETAMINOPHEN\HYDROCODONE BITARTRATE
  12. NEXIUM [Concomitant]
     Active Substance: ESOMEPRAZOLE MAGNESIUM
  13. EMEND [Concomitant]
     Active Substance: APREPITANT
  14. LORAZEPAM. [Concomitant]
     Active Substance: LORAZEPAM
  15. ALOXI [Concomitant]
     Active Substance: PALONOSETRON HYDROCHLORIDE
  16. NEULASTA [Concomitant]
     Active Substance: PEGFILGRASTIM

REACTIONS (1)
  - Alopecia [Not Recovered/Not Resolved]

NARRATIVE: CASE EVENT DATE: 20120401
